FAERS Safety Report 7354748-X (Version None)
Quarter: 2011Q1

REPORT INFORMATION
  Report Type: 
  Country: None (occurrence: None)
  Receive Date: 20110308
  Receipt Date: 20110223
  Transmission Date: 20110831
  Serious: Yes (Other)
  Sender: FDA-Public Use
  Company Number: JP-2011-10283

PATIENT
  Age: 62 Year
  Sex: Male
  Weight: 58 kg

DRUGS (7)
  1. FLUITRAN (TRICHLORMETHIAZIDE) [Concomitant]
  2. CLONAZEPAM [Concomitant]
  3. DIART (AZOSEMIDE) [Concomitant]
  4. SAMSCA [Suspect]
     Indication: CONGESTIVE CARDIOMYOPATHY
     Dosage: 7.5 MG MILLIGRAM(S), QD, ORAL ;15 MG MILLIGRAM(S), QD, ORAL ; 7.5 MG MILLIGRAM(S), QD, ORAL
     Route: 048
     Dates: start: 20101221, end: 20101230
  5. SAMSCA [Suspect]
     Indication: CONGESTIVE CARDIOMYOPATHY
     Dosage: 7.5 MG MILLIGRAM(S), QD, ORAL ;15 MG MILLIGRAM(S), QD, ORAL ; 7.5 MG MILLIGRAM(S), QD, ORAL
     Route: 048
     Dates: start: 20110113, end: 20110130
  6. SAMSCA [Suspect]
     Indication: CONGESTIVE CARDIOMYOPATHY
     Dosage: 7.5 MG MILLIGRAM(S), QD, ORAL ;15 MG MILLIGRAM(S), QD, ORAL ; 7.5 MG MILLIGRAM(S), QD, ORAL
     Route: 048
     Dates: start: 20110131
  7. LASIX [Concomitant]

REACTIONS (6)
  - DEHYDRATION [None]
  - HALLUCINATION, VISUAL [None]
  - BLOOD UREA ABNORMAL [None]
  - DISORIENTATION [None]
  - HALLUCINATION [None]
  - HYPERNATRAEMIA [None]
